FAERS Safety Report 7148013-3 (Version None)
Quarter: 2010Q4

REPORT INFORMATION
  Report Type: 
  Country: None (occurrence: None)
  Receive Date: 20101209
  Receipt Date: 20101207
  Transmission Date: 20110411
  Serious: Yes (Death, Life-Threatening)
  Sender: FDA-Public Use
  Company Number: FR-MILLENNIUM PHARMACEUTICALS, INC.-2010-06110

PATIENT

DRUGS (9)
  1. VELCADE [Suspect]
     Indication: AMYLOIDOSIS
     Dosage: UNK
     Route: 042
     Dates: start: 20101027, end: 20101110
  2. DEXAMETHASONE [Suspect]
     Indication: AMYLOIDOSIS
     Dosage: 40 MG, CYCLIC
     Route: 042
     Dates: start: 20101027, end: 20101110
  3. PYRIDOXINE HCL [Concomitant]
  4. HEPARIN CALCIUM [Concomitant]
  5. OMEPRAZOLE [Concomitant]
  6. MIDODRINE HYDROCHLORIDE [Concomitant]
  7. METOCLOPRAMIDE [Concomitant]
  8. ACETORPHAN [Concomitant]
  9. THIAMINE HYDROCHLORIDE [Suspect]

REACTIONS (3)
  - CARDIO-RESPIRATORY ARREST [None]
  - HYPOKALAEMIA [None]
  - VENTRICULAR TACHYCARDIA [None]
